FAERS Safety Report 8243553-8 (Version None)
Quarter: 2012Q1

REPORT INFORMATION
  Report Type: 
  Country: None (occurrence: None)
  Receive Date: 20120329
  Receipt Date: 20120321
  Transmission Date: 20120608
  Serious: Yes (Hospitalization)
  Sender: FDA-Public Use
  Company Number: GXBR2012US000633

PATIENT
  Sex: Male
  Weight: 93.424 kg

DRUGS (10)
  1. FISH OIL [Concomitant]
     Dosage: 1000 MG, QD
  2. SIMVASTATIN [Concomitant]
     Indication: HYPERCHOLESTEROLAEMIA
     Dosage: 40 MG, QD
     Route: 048
  3. FUROSEMIDE [Concomitant]
     Indication: HYPERTENSION
     Dosage: 20 MG, QD
     Route: 048
  4. SUCRALFATE [Concomitant]
     Dosage: 1 G, TID
  5. ENOXAPARIN SODIUM [Suspect]
     Indication: CARDIAC ABLATION
     Dosage: 90 MG, BID
     Route: 058
     Dates: start: 20120102, end: 20120108
  6. LEVOXYL [Concomitant]
     Indication: HYPOTHYROIDISM
     Dosage: 0.15 MG, QD
     Route: 048
  7. DEXLANSOPRAZOLE [Concomitant]
     Dosage: 60 MG, QD
  8. AMLODIPINE [Concomitant]
     Indication: HYPERTENSION
     Dosage: 5 MG, BID
     Route: 048
  9. ENOXAPARIN SODIUM [Suspect]
     Dosage: 90 MG, BID
     Route: 058
     Dates: start: 20120111, end: 20120112
  10. ASPIRIN [Concomitant]
     Dosage: 81 MG, QD

REACTIONS (11)
  - ABDOMINAL PAIN UPPER [None]
  - ATRIAL TACHYCARDIA [None]
  - SWELLING [None]
  - ANAEMIA [None]
  - ABDOMINAL WALL HAEMATOMA [None]
  - INJECTION SITE PAIN [None]
  - INJECTION SITE HAEMATOMA [None]
  - TONGUE ULCERATION [None]
  - BLISTER [None]
  - SINUSITIS [None]
  - ECCHYMOSIS [None]
